FAERS Safety Report 5037960-4 (Version None)
Quarter: 2006Q2

REPORT INFORMATION
  Report Type: 
  Country: None (occurrence: None)
  Receive Date: 20060613
  Receipt Date: 20060403
  Transmission Date: 20061013
  Serious: Yes (Life-Threatening, Hospitalization)
  Sender: FDA-Public Use
  Company Number: US-JNJFOC-20051102927

PATIENT
  Age: 30 Year
  Sex: Female
  Weight: 61.2356 kg

DRUGS (1)
  1. ORTHO EVRA [Suspect]
     Indication: CONTRACEPTION
     Dosage: 1 DOSE(S), 3 IN 4 WEEK, TRANSDERMAL
     Route: 062
     Dates: start: 20020101, end: 20030727

REACTIONS (5)
  - DIZZINESS [None]
  - HEADACHE [None]
  - HYPERPARATHYROIDISM PRIMARY [None]
  - INTRACRANIAL VENOUS SINUS THROMBOSIS [None]
  - VARICOSE VEIN [None]
